FAERS Safety Report 8539965 (Version 2)
Quarter: 2012Q4

REPORT INFORMATION
  Report Type: 
  Country: CA (occurrence: CA)
  Receive Date: 20120502
  Receipt Date: 20121217
  Transmission Date: 20130627
  Serious: Yes (Other)
  Sender: FDA-Public Use
  Company Number: CA-JNJFOC-20120409480

PATIENT
  Age: 16 Year
  Sex: Female
  Weight: 60 kg

DRUGS (3)
  1. REMICADE [Suspect]
     Indication: CROHN^S DISEASE
     Route: 042
     Dates: start: 20120419
  2. BENADRYL [Concomitant]
     Indication: PREMEDICATION
     Route: 065
  3. SOLU MEDROL [Concomitant]
     Indication: PREMEDICATION
     Route: 065

REACTIONS (4)
  - Swelling [Recovering/Resolving]
  - Palpitations [Recovered/Resolved]
  - Face oedema [Recovered/Resolved]
  - Urticaria [Recovering/Resolving]
